FAERS Safety Report 8115142-7 (Version None)
Quarter: 2012Q1

REPORT INFORMATION
  Report Type: 
  Country: None (occurrence: None)
  Receive Date: 20120206
  Receipt Date: 20111208
  Transmission Date: 20120608
  Serious: No
  Sender: FDA-Public Use
  Company Number: US-GLAXOSMITHKLINE-A0957534A

PATIENT
  Age: 39 Year
  Sex: Female

DRUGS (1)
  1. VELTIN [Suspect]
     Indication: ACNE
     Route: 061

REACTIONS (2)
  - DRY SKIN [None]
  - SKIN IRRITATION [None]
